FAERS Safety Report 10192915 (Version 1)
Quarter: 2014Q2

REPORT INFORMATION
  Report Type: Report from Study
  Country: US (occurrence: US)
  Receive Date: 20140523
  Receipt Date: 20140523
  Transmission Date: 20141212
  Serious: Yes (Hospitalization, Other)
  Sender: FDA-Public Use
  Company Number: US-ABBVIE-14P-163-1238235-00

PATIENT
  Age: 51 Year
  Sex: Male

DRUGS (3)
  1. HUMIRA 40MG/0.4ML [Suspect]
     Indication: CROHN^S DISEASE
     Dosage: 2 PENS  DAY 1
     Dates: start: 20140418, end: 20140418
  2. HUMIRA 40MG/0.4ML [Suspect]
     Dosage: 1 PEN DAY 8
  3. HUMIRA 40MG/0.4ML [Suspect]

REACTIONS (6)
  - Constipation [Recovering/Resolving]
  - Crohn^s disease [Recovering/Resolving]
  - Dyspnoea [Recovering/Resolving]
  - Erythema [Recovering/Resolving]
  - Peripheral swelling [Recovering/Resolving]
  - Palpitations [Recovering/Resolving]
